FAERS Safety Report 7402371-0 (Version None)
Quarter: 2011Q2

REPORT INFORMATION
  Report Type: 
  Country: None (occurrence: None)
  Receive Date: 20110408
  Receipt Date: 20110329
  Transmission Date: 20111010
  Serious: Yes (Hospitalization)
  Sender: FDA-Public Use
  Company Number: US-ELI_LILLY_AND_COMPANY-US201103008756

PATIENT
  Sex: Male
  Weight: 67.13 kg

DRUGS (14)
  1. ESCITALOPRAM OXALATE [Concomitant]
     Dosage: 10 MG, UNK
  2. PROCHLORPERAZINE MALEATE [Concomitant]
     Dosage: 10 MG, EVERY 4 HRS
  3. ZOCOR [Concomitant]
     Dosage: 40 MG, UNK
  4. PEMETREXED [Suspect]
     Indication: NON-SMALL CELL LUNG CANCER
     Dosage: 945 MG, OTHER
     Dates: start: 20110228
  5. ASPIRIN [Concomitant]
     Dosage: 325 MG, QD
  6. CISPLATIN [Suspect]
     Indication: NON-SMALL CELL LUNG CANCER
     Dosage: 142 MG, UNK
     Dates: start: 20110228
  7. MIRTAZAPINE [Concomitant]
     Dosage: 30 MG, EACH EVENING
  8. HYDREA [Concomitant]
     Dosage: 500 MG, OTHER
  9. MEGESTROL ACETATE [Concomitant]
     Dosage: 20 UNK, UNK
  10. OMEPRAZOLE [Concomitant]
     Dosage: 20 MG, QD
  11. MAGNESIUM OXIDE [Concomitant]
     Dosage: 250 MG, BID
  12. VITAMIN B-12 [Concomitant]
     Dosage: 1000 UG, QD
  13. PEGFILGRASTIM [Concomitant]
     Dosage: UNK
  14. CETUXIMAB [Suspect]
     Indication: NON-SMALL CELL LUNG CANCER
     Dosage: 473 MG, OTHER
     Dates: start: 20110228

REACTIONS (10)
  - DIARRHOEA [None]
  - DEHYDRATION [None]
  - BLOOD SODIUM DECREASED [None]
  - PROTEIN TOTAL DECREASED [None]
  - PAIN [None]
  - NAUSEA [None]
  - HAEMOGLOBIN DECREASED [None]
  - LEUKOCYTOSIS [None]
  - PLEURAL EFFUSION [None]
  - HYPOTENSION [None]
